FAERS Safety Report 7675216-1 (Version None)
Quarter: 2011Q3

REPORT INFORMATION
  Report Type: 
  Country: None (occurrence: None)
  Receive Date: 20110810
  Receipt Date: 20110810
  Transmission Date: 20111222
  Serious: Yes (Other)
  Sender: FDA-Public Use
  Company Number: None

PATIENT
  Age: 85 Year
  Sex: Female
  Weight: 54.431 kg

DRUGS (4)
  1. RANITIDINE [Suspect]
     Indication: OESOPHAGEAL DILATION PROCEDURE
     Dosage: ONCE
     Route: 048
     Dates: start: 20110801, end: 20110801
  2. STALEVO 100 [Concomitant]
  3. VITS C, B-50, D, E [Concomitant]
  4. LEVOTHRYROID [Concomitant]
     Route: 048

REACTIONS (2)
  - GASTROINTESTINAL PAIN [None]
  - DIARRHOEA [None]
